FAERS Safety Report 8418253-1 (Version None)
Quarter: 2012Q2

REPORT INFORMATION
  Report Type: 
  Country: None (occurrence: None)
  Receive Date: 20120607
  Receipt Date: 20120531
  Transmission Date: 20120825
  Serious: Yes (Other)
  Sender: FDA-Public Use
  Company Number: US-CELGENEUS-163-21880-10120994

PATIENT

DRUGS (3)
  1. REVLIMID [Suspect]
     Dosage: 10 MILLIGRAM
     Route: 048
  2. OFATUMUMAB [Suspect]
     Dosage: 300MG WEEK 1, 1,000MG WEEK 2, THEN MONTHLY FOR MONTHS 2-6
     Route: 041
  3. ALLOPURINOL [Concomitant]
     Indication: PROPHYLAXIS
     Dosage: 300 MILLIGRAM
     Route: 065

REACTIONS (5)
  - ANAEMIA [None]
  - PAROTITIS [None]
  - TUMOUR FLARE [None]
  - NEUTROPENIA [None]
  - INFUSION RELATED REACTION [None]
